FAERS Safety Report 4838498-7 (Version None)
Quarter: 2005Q4

REPORT INFORMATION
  Report Type: 
  Country: None (occurrence: None)
  Receive Date: 20051129
  Receipt Date: 20050822
  Transmission Date: 20060501
  Serious: Yes (Hospitalization)
  Sender: FDA-Public Use
  Company Number: US-MERCK-0508USA03657

PATIENT
  Age: 58 Year
  Sex: Male
  Weight: 84 kg

DRUGS (20)
  1. VIOXX [Suspect]
     Indication: ARTHRITIS
     Route: 048
     Dates: start: 20000701, end: 20040401
  2. VIOXX [Suspect]
     Route: 048
  3. TYLENOL [Concomitant]
     Route: 065
  4. CONSTULOSE [Concomitant]
     Route: 065
  5. AUGMENTIN [Concomitant]
     Route: 065
  6. VIAGRA [Concomitant]
     Route: 065
  7. CIPRO [Concomitant]
     Route: 065
  8. BELLADONNA AND PHENOBARBITAL [Concomitant]
     Route: 065
  9. INDOMETHACIN [Concomitant]
     Route: 065
  10. ALLOPURINOL [Concomitant]
     Route: 065
  11. LIPITOR [Concomitant]
     Route: 065
  12. LORAZEPAM [Concomitant]
     Route: 065
  13. AMOXICILLIN [Concomitant]
     Route: 065
  14. ACETAMINOPHEN AND PROPOXYPHENE NAPSYLATE [Concomitant]
     Route: 065
  15. TRICOR [Concomitant]
     Route: 065
  16. CIALIS [Concomitant]
     Route: 065
  17. ACETAMINOPHEN AND CODEINE [Concomitant]
     Route: 065
  18. NAPROXEN SODIUM [Concomitant]
     Route: 065
  19. DEPO-MEDROL [Concomitant]
     Route: 065
  20. CEFTIN [Concomitant]
     Route: 065

REACTIONS (4)
  - ANGINA UNSTABLE [None]
  - CORONARY ARTERY DISEASE [None]
  - HYPERLIPIDAEMIA [None]
  - MUSCULOSKELETAL DISCOMFORT [None]
